FAERS Safety Report 17979129 (Version 7)
Quarter: 2021Q2

REPORT INFORMATION
  Report Type: Report from Study
  Country: JP (occurrence: JP)
  Receive Date: 20200703
  Receipt Date: 20210506
  Transmission Date: 20210717
  Serious: Yes (Life-Threatening, Hospitalization)
  Sender: FDA-Public Use
  Company Number: JP-SAKK-2020SA157274AA

PATIENT
  Age: 48 Year
  Sex: Male
  Weight: 84 kg

DRUGS (150)
  1. CAPLACIZUMAB [Suspect]
     Active Substance: CAPLACIZUMAB
     Indication: THROMBOTIC THROMBOCYTOPENIC PURPURA
     Dosage: 10 MG/DAY
     Route: 042
     Dates: start: 20200602, end: 20200602
  2. CAPLACIZUMAB [Suspect]
     Active Substance: CAPLACIZUMAB
     Dosage: 10 MG/DAY
     Route: 058
     Dates: start: 20200610, end: 20200610
  3. CAPLACIZUMAB [Suspect]
     Active Substance: CAPLACIZUMAB
     Dosage: 10 MG/DAY
     Route: 058
     Dates: start: 20200612, end: 20200612
  4. CAPLACIZUMAB [Suspect]
     Active Substance: CAPLACIZUMAB
     Dosage: 10 MG/DAY
     Route: 058
     Dates: start: 20200614, end: 20200614
  5. CAPLACIZUMAB [Suspect]
     Active Substance: CAPLACIZUMAB
     Dosage: 10 MG/DAY
     Route: 058
     Dates: start: 20200619, end: 20200625
  6. ENALAPRIL MALEATE. [Concomitant]
     Active Substance: ENALAPRIL MALEATE
     Dosage: 5 MG, QD
     Route: 048
     Dates: start: 20200620, end: 20200625
  7. PREDNISOLONE. [Concomitant]
     Active Substance: PREDNISOLONE
     Indication: DERMATOMYOSITIS
     Dosage: 60 MG, QD
     Route: 048
     Dates: start: 20200612, end: 20200616
  8. PREDNISOLONE SODIUM SUCCINATE [Concomitant]
     Active Substance: PREDNISOLONE SODIUM SUCCINATE
     Dosage: 80 MG, QD
     Route: 042
     Dates: start: 20200709, end: 20200714
  9. FEBUXOSTAT. [Concomitant]
     Active Substance: FEBUXOSTAT
     Indication: HYPERURICAEMIA
     Dosage: 40 MG, QD
     Route: 048
     Dates: start: 20200604, end: 20200616
  10. CALCIUM POLYSTYRENE SULFONATE [Concomitant]
     Active Substance: CALCIUM POLYSTYRENE SULFONATE
     Dosage: 5 G, QD
     Route: 048
     Dates: start: 20200608, end: 20200608
  11. LEVETIRACETAM. [Concomitant]
     Active Substance: LEVETIRACETAM
     Indication: THROMBOTIC THROMBOCYTOPENIC PURPURA
     Dosage: 250 MG, QD
     Route: 042
     Dates: start: 20200604, end: 20200604
  12. LANSOPRAZOLE. [Concomitant]
     Active Substance: LANSOPRAZOLE
     Indication: PROPHYLAXIS
     Dosage: 30 MG, QD
     Route: 048
     Dates: start: 20200610, end: 20200617
  13. FENTANYL CITRATE. [Concomitant]
     Active Substance: FENTANYL CITRATE
     Indication: CHOLECYSTITIS ACUTE
     Dosage: 0.5 MG, CONT
     Route: 042
     Dates: start: 20200617, end: 20200618
  14. NICARDIPINE HYDROCHLORIDE. [Concomitant]
     Active Substance: NICARDIPINE HYDROCHLORIDE
     Indication: HYPERTENSION
     Dosage: 3 ML/HOUR, CONT
     Route: 042
     Dates: start: 20200626, end: 20200701
  15. CAPLACIZUMAB [Suspect]
     Active Substance: CAPLACIZUMAB
     Dosage: 10 MG/DAY
     Route: 058
     Dates: start: 20200602, end: 20200602
  16. CAPLACIZUMAB [Suspect]
     Active Substance: CAPLACIZUMAB
     Dosage: 10 MG/DAY
     Route: 058
     Dates: start: 20200603, end: 20200603
  17. CAPLACIZUMAB [Suspect]
     Active Substance: CAPLACIZUMAB
     Dosage: 10 MG/DAY
     Route: 058
     Dates: start: 20200604, end: 20200604
  18. CAPLACIZUMAB [Suspect]
     Active Substance: CAPLACIZUMAB
     Dosage: 10 MG/DAY
     Route: 058
     Dates: start: 20200605, end: 20200605
  19. CAPLACIZUMAB [Suspect]
     Active Substance: CAPLACIZUMAB
     Dosage: 10 MG/DAY
     Route: 058
     Dates: start: 20200606, end: 20200606
  20. CAPLACIZUMAB [Suspect]
     Active Substance: CAPLACIZUMAB
     Dosage: 10 MG/DAY
     Route: 058
     Dates: start: 20200606, end: 20200606
  21. CAPLACIZUMAB [Suspect]
     Active Substance: CAPLACIZUMAB
     Dosage: 10 MG/DAY
     Route: 058
     Dates: start: 20200609, end: 20200609
  22. CAPLACIZUMAB [Suspect]
     Active Substance: CAPLACIZUMAB
     Dosage: 10 MG/DAY
     Route: 058
     Dates: start: 20200609, end: 20200609
  23. CAPLACIZUMAB [Suspect]
     Active Substance: CAPLACIZUMAB
     Dosage: 10 MG/DAY
     Route: 058
     Dates: start: 20200610, end: 20200610
  24. CAPLACIZUMAB [Suspect]
     Active Substance: CAPLACIZUMAB
     Dosage: 10 MG/DAY
     Route: 058
     Dates: start: 20200612, end: 20200612
  25. CAPLACIZUMAB [Suspect]
     Active Substance: CAPLACIZUMAB
     Dosage: 10 MG/DAY
     Route: 058
     Dates: start: 20200615, end: 20200615
  26. CAPLACIZUMAB [Suspect]
     Active Substance: CAPLACIZUMAB
     Dosage: 10 MG/DAY
     Route: 058
     Dates: start: 20200615, end: 20200615
  27. CAPLACIZUMAB [Suspect]
     Active Substance: CAPLACIZUMAB
     Dosage: 10 MG/DAY
     Route: 058
     Dates: start: 20200616, end: 20200616
  28. ENALAPRIL MALEATE. [Concomitant]
     Active Substance: ENALAPRIL MALEATE
     Indication: MYOCARDIAL INFARCTION
     Dosage: 5 MG, QD
     Route: 048
     Dates: start: 20200605, end: 20200617
  29. CARVEDILOL. [Concomitant]
     Active Substance: CARVEDILOL
     Dosage: 2.5 MG, QD
     Route: 048
     Dates: start: 20200617, end: 20200617
  30. LEVETIRACETAM. [Concomitant]
     Active Substance: LEVETIRACETAM
     Dosage: 500 MG, BID
     Route: 042
     Dates: start: 20200607, end: 20200608
  31. LEVETIRACETAM. [Concomitant]
     Active Substance: LEVETIRACETAM
     Dosage: 500 MG, QD
     Route: 042
     Dates: start: 20200617, end: 20200617
  32. LEVETIRACETAM. [Concomitant]
     Active Substance: LEVETIRACETAM
     Dosage: 250 MG, BID
     Route: 048
     Dates: start: 20200626, end: 20200701
  33. LANSOPRAZOLE. [Concomitant]
     Active Substance: LANSOPRAZOLE
     Dosage: 30 MG, QD
     Route: 048
     Dates: start: 20200620, end: 20200701
  34. RILMAZAFONE HYDROCHLORIDE [Concomitant]
     Active Substance: RILMAZAFONE HYDROCHLORIDE
     Indication: PROPHYLAXIS
     Dosage: 1 MG, QD
     Route: 048
     Dates: start: 20200611, end: 20200611
  35. SODIUM GUALENATE HYDRATE [Concomitant]
     Active Substance: SODIUM GUALENATE MONOHYDRATE
     Indication: STOMATITIS
     Dosage: 1 APPLICATION, PRN
     Route: 061
     Dates: start: 20200616, end: 20200701
  36. FENTANYL CITRATE. [Concomitant]
     Active Substance: FENTANYL CITRATE
     Indication: THROMBOTIC THROMBOCYTOPENIC PURPURA
     Dosage: 0.5 MG, CONT
     Route: 042
     Dates: start: 20200602, end: 20200604
  37. PENTAMIDINE ISETHIONATE. [Concomitant]
     Active Substance: PENTAMIDINE ISETHIONATE
     Indication: ANTIFUNGAL PROPHYLAXIS
     Dosage: 280 MG, QD
     Route: 042
     Dates: start: 20200626, end: 20200629
  38. PARACETAMOL [Concomitant]
     Active Substance: ACETAMINOPHEN
     Indication: THROMBOTIC THROMBOCYTOPENIC PURPURA
     Dosage: 500 MG, PRN
     Route: 042
     Dates: start: 20200606, end: 20200608
  39. CAPLACIZUMAB [Suspect]
     Active Substance: CAPLACIZUMAB
     Indication: THROMBOTIC THROMBOCYTOPENIC PURPURA
     Dosage: 10 MG/DAY
     Route: 042
     Dates: start: 20200602, end: 20200602
  40. CAPLACIZUMAB [Suspect]
     Active Substance: CAPLACIZUMAB
     Dosage: 10 MG/DAY
     Route: 058
     Dates: start: 20200605, end: 20200605
  41. CAPLACIZUMAB [Suspect]
     Active Substance: CAPLACIZUMAB
     Dosage: 10 MG/DAY
     Route: 058
     Dates: start: 20200605, end: 20200605
  42. CAPLACIZUMAB [Suspect]
     Active Substance: CAPLACIZUMAB
     Dosage: 10 MG/DAY
     Route: 058
     Dates: start: 20200607, end: 20200607
  43. CAPLACIZUMAB [Suspect]
     Active Substance: CAPLACIZUMAB
     Dosage: 10 MG/DAY
     Route: 058
     Dates: start: 20200610, end: 20200610
  44. CAPLACIZUMAB [Suspect]
     Active Substance: CAPLACIZUMAB
     Dosage: 10 MG/DAY
     Route: 058
     Dates: start: 20200612, end: 20200612
  45. CAPLACIZUMAB [Suspect]
     Active Substance: CAPLACIZUMAB
     Dosage: 10 MG/DAY
     Route: 058
     Dates: start: 20200619, end: 20200625
  46. CAPLACIZUMAB [Suspect]
     Active Substance: CAPLACIZUMAB
     Dosage: 10 MG/DAY
     Route: 058
     Dates: start: 20200619, end: 20200625
  47. CARVEDILOL. [Concomitant]
     Active Substance: CARVEDILOL
     Dosage: 2.5 MG, BID
     Route: 048
     Dates: start: 20200620, end: 20200630
  48. PREDNISOLONE. [Concomitant]
     Active Substance: PREDNISOLONE
     Dosage: 50 MG, QD
     Route: 048
     Dates: start: 20200620, end: 20200625
  49. PREDNISOLONE. [Concomitant]
     Active Substance: PREDNISOLONE
     Dosage: 25 MG, QD
     Route: 048
     Dates: start: 20200626, end: 20200626
  50. PREDNISOLONE SODIUM SUCCINATE [Concomitant]
     Active Substance: PREDNISOLONE SODIUM SUCCINATE
     Dosage: 60 MG, QD
     Route: 042
     Dates: start: 20200715, end: 20200721
  51. PREDNISOLONE SODIUM SUCCINATE [Concomitant]
     Active Substance: PREDNISOLONE SODIUM SUCCINATE
     Dosage: 90 MG, QD
     Route: 042
     Dates: start: 20200727
  52. CALCIUM POLYSTYRENE SULFONATE [Concomitant]
     Active Substance: CALCIUM POLYSTYRENE SULFONATE
     Indication: RENAL IMPAIRMENT
     Dosage: 5 G, BID
     Route: 048
     Dates: start: 20200604, end: 20200607
  53. LEVETIRACETAM. [Concomitant]
     Active Substance: LEVETIRACETAM
     Dosage: 416 MG, TID
     Route: 042
     Dates: start: 20200606, end: 20200606
  54. LEVETIRACETAM. [Concomitant]
     Active Substance: LEVETIRACETAM
     Dosage: 500 MG, QD
     Route: 048
     Dates: start: 20200617, end: 20200617
  55. OMEPRAZOLE SODIUM [Concomitant]
     Active Substance: OMEPRAZOLE SODIUM
     Dosage: 20 MG, QD
     Route: 042
     Dates: start: 20200617, end: 20200617
  56. METOCLOPRAMIDE. [Concomitant]
     Active Substance: METOCLOPRAMIDE
     Indication: NAUSEA
     Dosage: 5 MG, 1X
     Route: 048
     Dates: start: 20200612, end: 20200612
  57. FENTANYL CITRATE. [Concomitant]
     Active Substance: FENTANYL CITRATE
     Indication: PULMONARY ALVEOLAR HAEMORRHAGE
     Dosage: 0.5 MG, CONT
     Route: 042
     Dates: start: 20200626, end: 20200701
  58. MIDAZOLAM. [Concomitant]
     Active Substance: MIDAZOLAM
     Dosage: 3 ML/HOUR, CONT
     Route: 042
     Dates: start: 20200701, end: 20200701
  59. DEXMEDETOMIDINE HYDROCHLORIDE. [Concomitant]
     Active Substance: DEXMEDETOMIDINE HYDROCHLORIDE
     Dosage: 0.5 UG/KG/HOUR, CONT
     Route: 042
     Dates: start: 20200702, end: 20200721
  60. FUROSEMIDE. [Concomitant]
     Active Substance: FUROSEMIDE
     Indication: RENAL IMPAIRMENT
     Dosage: 4 ML/HOUR, CONT
     Route: 042
     Dates: start: 20200626, end: 20200630
  61. PARACETAMOL [Concomitant]
     Active Substance: ACETAMINOPHEN
     Indication: CHOLECYSTITIS ACUTE
     Dosage: 1 G, 1X
     Route: 042
     Dates: start: 20200617, end: 20200617
  62. PARACETAMOL [Concomitant]
     Active Substance: ACETAMINOPHEN
     Dosage: 500 MG, 1X
     Route: 042
     Dates: start: 20200619, end: 20200619
  63. CAPLACIZUMAB [Suspect]
     Active Substance: CAPLACIZUMAB
     Dosage: 10 MG/DAY
     Route: 058
     Dates: start: 20200605, end: 20200605
  64. CAPLACIZUMAB [Suspect]
     Active Substance: CAPLACIZUMAB
     Dosage: 10 MG/DAY
     Route: 058
     Dates: start: 20200609, end: 20200609
  65. CAPLACIZUMAB [Suspect]
     Active Substance: CAPLACIZUMAB
     Dosage: 10 MG/DAY
     Route: 058
     Dates: start: 20200610, end: 20200610
  66. CAPLACIZUMAB [Suspect]
     Active Substance: CAPLACIZUMAB
     Dosage: 10 MG/DAY
     Route: 058
     Dates: start: 20200611, end: 20200611
  67. CAPLACIZUMAB [Suspect]
     Active Substance: CAPLACIZUMAB
     Dosage: 10 MG/DAY
     Route: 058
     Dates: start: 20200613, end: 20200613
  68. CAPLACIZUMAB [Suspect]
     Active Substance: CAPLACIZUMAB
     Dosage: 10 MG/DAY
     Route: 058
     Dates: start: 20200613, end: 20200613
  69. CAPLACIZUMAB [Suspect]
     Active Substance: CAPLACIZUMAB
     Dosage: 10 MG/DAY
     Route: 058
     Dates: start: 20200616, end: 20200616
  70. CAPLACIZUMAB [Suspect]
     Active Substance: CAPLACIZUMAB
     Dosage: 10 MG/DAY
     Route: 058
     Dates: start: 20200616, end: 20200616
  71. PREDNISOLONE. [Concomitant]
     Active Substance: PREDNISOLONE
     Indication: THROMBOTIC THROMBOCYTOPENIC PURPURA
     Dosage: 70 MG, QD
     Route: 048
     Dates: start: 20200605, end: 20200611
  72. LEVETIRACETAM. [Concomitant]
     Active Substance: LEVETIRACETAM
     Dosage: 500 MG, BID
     Route: 048
     Dates: start: 20200620, end: 20200625
  73. SODIUM PICOSULFATE [Concomitant]
     Active Substance: SODIUM PICOSULFATE
     Indication: CONSTIPATION
     Dosage: 12.5 DROPS, PRN
     Route: 048
     Dates: start: 20200605
  74. MIDAZOLAM. [Concomitant]
     Active Substance: MIDAZOLAM
     Indication: THROMBOTIC THROMBOCYTOPENIC PURPURA
     Dosage: 20 MG, 1X
     Route: 042
     Dates: start: 20200602, end: 20200602
  75. ROCURONIUM BROMIDE. [Concomitant]
     Active Substance: ROCURONIUM BROMIDE
     Indication: THROMBOTIC THROMBOCYTOPENIC PURPURA
     Dosage: 100 MG, 1X
     Route: 042
     Dates: start: 20200602, end: 20200602
  76. CAPLACIZUMAB [Suspect]
     Active Substance: CAPLACIZUMAB
     Dosage: 10 MG/DAY
     Route: 058
     Dates: start: 20200602, end: 20200602
  77. CAPLACIZUMAB [Suspect]
     Active Substance: CAPLACIZUMAB
     Dosage: 10 MG/DAY
     Route: 058
     Dates: start: 20200604, end: 20200604
  78. CAPLACIZUMAB [Suspect]
     Active Substance: CAPLACIZUMAB
     Dosage: 10 MG/DAY
     Route: 058
     Dates: start: 20200606, end: 20200606
  79. CAPLACIZUMAB [Suspect]
     Active Substance: CAPLACIZUMAB
     Dosage: 10 MG/DAY
     Route: 058
     Dates: start: 20200612, end: 20200612
  80. CAPLACIZUMAB [Suspect]
     Active Substance: CAPLACIZUMAB
     Dosage: 10 MG/DAY
     Route: 058
     Dates: start: 20200613, end: 20200613
  81. CAPLACIZUMAB [Suspect]
     Active Substance: CAPLACIZUMAB
     Dosage: 10 MG/DAY
     Route: 058
     Dates: start: 20200614, end: 20200614
  82. CAPLACIZUMAB [Suspect]
     Active Substance: CAPLACIZUMAB
     Dosage: 10 MG/DAY
     Route: 058
     Dates: start: 20200619, end: 20200625
  83. ACETYLSALICYLIC ACID [Concomitant]
     Active Substance: ASPIRIN
     Dosage: 100 MG, QD
     Route: 048
     Dates: start: 20200620, end: 20200626
  84. ISOSORBIDE MONONITRATE. [Concomitant]
     Active Substance: ISOSORBIDE MONONITRATE
     Indication: MYOCARDIAL INFARCTION
     Dosage: 20 MG, BID
     Route: 048
     Dates: start: 20200602, end: 20200616
  85. METHYLPREDNISOLONE SODIUM SUCCINATE. [Concomitant]
     Active Substance: METHYLPREDNISOLONE SODIUM SUCCINATE
     Indication: THROMBOTIC THROMBOCYTOPENIC PURPURA
     Dosage: 1 G, QD
     Route: 042
     Dates: start: 20200602, end: 20200604
  86. METHYLPREDNISOLONE SODIUM SUCCINATE. [Concomitant]
     Active Substance: METHYLPREDNISOLONE SODIUM SUCCINATE
     Indication: PULMONARY ALVEOLAR HAEMORRHAGE
     Dosage: 1 G, QD
     Route: 042
     Dates: start: 20200727
  87. PREDNISOLONE SODIUM SUCCINATE [Concomitant]
     Active Substance: PREDNISOLONE SODIUM SUCCINATE
     Indication: THROMBOTIC THROMBOCYTOPENIC PURPURA
     Dosage: 30 MG, QD
     Route: 042
     Dates: start: 20200617, end: 20200617
  88. PREDNISOLONE SODIUM SUCCINATE [Concomitant]
     Active Substance: PREDNISOLONE SODIUM SUCCINATE
     Indication: DERMATOMYOSITIS
     Dosage: 60 MG, QD
     Route: 042
     Dates: start: 20200618, end: 20200619
  89. LEVETIRACETAM. [Concomitant]
     Active Substance: LEVETIRACETAM
     Dosage: 250 MG, TID
     Route: 042
     Dates: start: 20200605, end: 20200605
  90. LEVETIRACETAM. [Concomitant]
     Active Substance: LEVETIRACETAM
     Dosage: 500 MG, BID
     Route: 042
     Dates: start: 20200618, end: 20200619
  91. OMEPRAZOLE SODIUM [Concomitant]
     Active Substance: OMEPRAZOLE SODIUM
     Dosage: 20 MG, BID
     Route: 042
     Dates: start: 20200603, end: 20200609
  92. OMEPRAZOLE SODIUM [Concomitant]
     Active Substance: OMEPRAZOLE SODIUM
     Dosage: 20 MG, BID
     Route: 042
     Dates: start: 20200618, end: 20200619
  93. SENNOSIDE A+B [Concomitant]
     Active Substance: SENNOSIDES A AND B
     Indication: CONSTIPATION
     Dosage: 24 MG, 1X
     Route: 048
     Dates: start: 20200613, end: 20200613
  94. DEXAMETHASONE. [Concomitant]
     Active Substance: DEXAMETHASONE
     Indication: STOMATITIS
     Dosage: 1 APPLICATION, PRN
     Route: 061
     Dates: start: 20200607, end: 20200701
  95. MIDAZOLAM. [Concomitant]
     Active Substance: MIDAZOLAM
     Indication: PULMONARY ALVEOLAR HAEMORRHAGE
     Dosage: 10 MG, 1X
     Route: 042
     Dates: start: 20200626, end: 20200626
  96. CAPLACIZUMAB [Suspect]
     Active Substance: CAPLACIZUMAB
     Dosage: 10 MG/DAY
     Route: 058
     Dates: start: 20200602, end: 20200602
  97. CAPLACIZUMAB [Suspect]
     Active Substance: CAPLACIZUMAB
     Dosage: 10 MG/DAY
     Route: 058
     Dates: start: 20200603, end: 20200603
  98. CAPLACIZUMAB [Suspect]
     Active Substance: CAPLACIZUMAB
     Dosage: 10 MG/DAY
     Route: 058
     Dates: start: 20200603, end: 20200603
  99. CAPLACIZUMAB [Suspect]
     Active Substance: CAPLACIZUMAB
     Dosage: 10 MG/DAY
     Route: 058
     Dates: start: 20200606, end: 20200606
  100. CAPLACIZUMAB [Suspect]
     Active Substance: CAPLACIZUMAB
     Dosage: 10 MG/DAY
     Route: 058
     Dates: start: 20200608, end: 20200608
  101. CAPLACIZUMAB [Suspect]
     Active Substance: CAPLACIZUMAB
     Dosage: 10 MG/DAY
     Route: 058
     Dates: start: 20200608, end: 20200608
  102. CAPLACIZUMAB [Suspect]
     Active Substance: CAPLACIZUMAB
     Dosage: 10 MG/DAY
     Route: 058
     Dates: start: 20200609, end: 20200609
  103. CAPLACIZUMAB [Suspect]
     Active Substance: CAPLACIZUMAB
     Dosage: 10 MG/DAY
     Route: 058
     Dates: start: 20200615, end: 20200615
  104. ISOSORBIDE MONONITRATE. [Concomitant]
     Active Substance: ISOSORBIDE MONONITRATE
     Dosage: 20 MG, QD
     Route: 048
     Dates: start: 20200617, end: 20200617
  105. ISOSORBIDE MONONITRATE. [Concomitant]
     Active Substance: ISOSORBIDE MONONITRATE
     Dosage: 20 MG, BID
     Route: 048
     Dates: start: 20200620, end: 20200630
  106. PREDNISOLONE SODIUM SUCCINATE [Concomitant]
     Active Substance: PREDNISOLONE SODIUM SUCCINATE
     Indication: PULMONARY ALVEOLAR HAEMORRHAGE
     Dosage: 52 MG, QD
     Route: 042
     Dates: start: 20200626, end: 20200626
  107. PREDNISOLONE SODIUM SUCCINATE [Concomitant]
     Active Substance: PREDNISOLONE SODIUM SUCCINATE
     Dosage: 90 MG, QD
     Route: 042
     Dates: start: 20200702, end: 20200708
  108. HYDROCORTISONE SODIUM SUCCINATE [Concomitant]
     Active Substance: HYDROCORTISONE SODIUM SUCCINATE
     Dosage: 50 MG, BID
     Route: 042
     Dates: start: 20200620, end: 20200620
  109. ATOVAQUONE. [Concomitant]
     Active Substance: ATOVAQUONE
     Indication: ANTIFUNGAL PROPHYLAXIS
     Dosage: 1.5 G, QD
     Route: 048
     Dates: start: 20200605, end: 20200617
  110. ATOVAQUONE. [Concomitant]
     Active Substance: ATOVAQUONE
     Dosage: 1.5 G, QD
     Route: 048
     Dates: start: 20200620, end: 20200626
  111. OMEPRAZOLE SODIUM [Concomitant]
     Active Substance: OMEPRAZOLE SODIUM
     Indication: PROPHYLAXIS
     Dosage: 20 MG, QD
     Route: 042
     Dates: start: 20200602, end: 20200602
  112. DEXMEDETOMIDINE HYDROCHLORIDE. [Concomitant]
     Active Substance: DEXMEDETOMIDINE HYDROCHLORIDE
     Indication: THROMBOTIC THROMBOCYTOPENIC PURPURA
     Dosage: 400 UG, CONT
     Route: 042
     Dates: start: 20200603, end: 20200604
  113. CAPLACIZUMAB [Suspect]
     Active Substance: CAPLACIZUMAB
     Indication: THROMBOTIC THROMBOCYTOPENIC PURPURA
     Dosage: 10 MG/DAY
     Route: 042
     Dates: start: 20200602, end: 20200602
  114. CAPLACIZUMAB [Suspect]
     Active Substance: CAPLACIZUMAB
     Indication: THROMBOTIC THROMBOCYTOPENIC PURPURA
     Dosage: 10 MG/DAY
     Route: 042
     Dates: start: 20200602, end: 20200602
  115. CAPLACIZUMAB [Suspect]
     Active Substance: CAPLACIZUMAB
     Dosage: 10 MG/DAY
     Route: 058
     Dates: start: 20200604, end: 20200604
  116. CAPLACIZUMAB [Suspect]
     Active Substance: CAPLACIZUMAB
     Dosage: 10 MG/DAY
     Route: 058
     Dates: start: 20200613, end: 20200613
  117. CAPLACIZUMAB [Suspect]
     Active Substance: CAPLACIZUMAB
     Dosage: 10 MG/DAY
     Route: 058
     Dates: start: 20200614, end: 20200614
  118. CAPLACIZUMAB [Suspect]
     Active Substance: CAPLACIZUMAB
     Dosage: 10 MG/DAY
     Route: 058
     Dates: start: 20200616, end: 20200616
  119. ACETYLSALICYLIC ACID [Concomitant]
     Active Substance: ASPIRIN
     Indication: MYOCARDIAL INFARCTION
     Dosage: 100 MG, QD
     Route: 048
     Dates: start: 20200604, end: 20200617
  120. METHYLPREDNISOLONE SODIUM SUCCINATE. [Concomitant]
     Active Substance: METHYLPREDNISOLONE SODIUM SUCCINATE
     Indication: DERMATOMYOSITIS
     Dosage: 1 G, QD
     Route: 042
     Dates: start: 20200626, end: 20200628
  121. HYDROCORTISONE SODIUM SUCCINATE [Concomitant]
     Active Substance: HYDROCORTISONE SODIUM SUCCINATE
     Indication: THROMBOTIC THROMBOCYTOPENIC PURPURA
     Dosage: 50 MG, BID
     Route: 042
     Dates: start: 20200617, end: 20200617
  122. HYDROCORTISONE SODIUM SUCCINATE [Concomitant]
     Active Substance: HYDROCORTISONE SODIUM SUCCINATE
     Indication: DERMATOMYOSITIS
     Dosage: 50 MG, QID
     Route: 042
     Dates: start: 20200618, end: 20200619
  123. RAMELTEON [Concomitant]
     Active Substance: RAMELTEON
     Indication: PROPHYLAXIS
     Dosage: 8 MG, QD
     Route: 048
     Dates: start: 20200605, end: 20200616
  124. LANOCONAZOLE [Concomitant]
     Active Substance: LANOCONAZOLE
     Indication: RASH
     Dosage: 1 APPLICATION, PRN
     Route: 061
     Dates: start: 20200624, end: 20200701
  125. FENTANYL CITRATE. [Concomitant]
     Active Substance: FENTANYL CITRATE
     Dosage: 25 UG/HOUR, CONT
     Route: 042
     Dates: start: 20200702, end: 20200721
  126. FENTANYL CITRATE. [Concomitant]
     Active Substance: FENTANYL CITRATE
     Dosage: 2 ML/HOUR, CONT
     Route: 042
     Dates: start: 20200722
  127. ROCURONIUM BROMIDE. [Concomitant]
     Active Substance: ROCURONIUM BROMIDE
     Dosage: 50 MG, 1X
     Route: 042
     Dates: start: 20200630, end: 20200630
  128. DEXMEDETOMIDINE HYDROCHLORIDE. [Concomitant]
     Active Substance: DEXMEDETOMIDINE HYDROCHLORIDE
     Dosage: 18 ML/HOUR, CONT
     Route: 042
     Dates: start: 20200722
  129. MEROPENEM TRIHYDRATE [Concomitant]
     Active Substance: MEROPENEM
     Indication: PNEUMONIA
     Dosage: 750 MG, BID
     Route: 042
     Dates: start: 20200626, end: 20200626
  130. CAPLACIZUMAB [Suspect]
     Active Substance: CAPLACIZUMAB
     Dosage: 10 MG/DAY
     Route: 058
     Dates: start: 20200602, end: 20200602
  131. CAPLACIZUMAB [Suspect]
     Active Substance: CAPLACIZUMAB
     Dosage: 10 MG/DAY
     Route: 058
     Dates: start: 20200603, end: 20200603
  132. CAPLACIZUMAB [Suspect]
     Active Substance: CAPLACIZUMAB
     Dosage: 10 MG/DAY
     Route: 058
     Dates: start: 20200604, end: 20200604
  133. CAPLACIZUMAB [Suspect]
     Active Substance: CAPLACIZUMAB
     Dosage: 10 MG/DAY
     Route: 058
     Dates: start: 20200607, end: 20200607
  134. CAPLACIZUMAB [Suspect]
     Active Substance: CAPLACIZUMAB
     Dosage: 10 MG/DAY
     Route: 058
     Dates: start: 20200607, end: 20200607
  135. CAPLACIZUMAB [Suspect]
     Active Substance: CAPLACIZUMAB
     Dosage: 10 MG/DAY
     Route: 058
     Dates: start: 20200607, end: 20200607
  136. CAPLACIZUMAB [Suspect]
     Active Substance: CAPLACIZUMAB
     Dosage: 10 MG/DAY
     Route: 058
     Dates: start: 20200608, end: 20200608
  137. CAPLACIZUMAB [Suspect]
     Active Substance: CAPLACIZUMAB
     Dosage: 10 MG/DAY
     Route: 058
     Dates: start: 20200608, end: 20200608
  138. CAPLACIZUMAB [Suspect]
     Active Substance: CAPLACIZUMAB
     Dosage: 10 MG/DAY
     Route: 058
     Dates: start: 20200611, end: 20200611
  139. CAPLACIZUMAB [Suspect]
     Active Substance: CAPLACIZUMAB
     Dosage: 10 MG/DAY
     Route: 058
     Dates: start: 20200611, end: 20200611
  140. CAPLACIZUMAB [Suspect]
     Active Substance: CAPLACIZUMAB
     Dosage: 10 MG/DAY
     Route: 058
     Dates: start: 20200611, end: 20200611
  141. CAPLACIZUMAB [Suspect]
     Active Substance: CAPLACIZUMAB
     Dosage: 10 MG/DAY
     Route: 058
     Dates: start: 20200614, end: 20200614
  142. CAPLACIZUMAB [Suspect]
     Active Substance: CAPLACIZUMAB
     Dosage: 10 MG/DAY
     Route: 058
     Dates: start: 20200615, end: 20200615
  143. CARVEDILOL. [Concomitant]
     Active Substance: CARVEDILOL
     Indication: HYPERTENSION
     Dosage: 2.5 MG, BID
     Route: 048
     Dates: start: 20200603, end: 20200616
  144. PREDNISOLONE. [Concomitant]
     Active Substance: PREDNISOLONE
     Dosage: 30 MG, QD
     Route: 048
     Dates: start: 20200617, end: 20200617
  145. PREDNISOLONE SODIUM SUCCINATE [Concomitant]
     Active Substance: PREDNISOLONE SODIUM SUCCINATE
     Dosage: 70 MG, QD
     Route: 042
     Dates: start: 20200722, end: 20200726
  146. LEVETIRACETAM. [Concomitant]
     Active Substance: LEVETIRACETAM
     Indication: THROMBOTIC THROMBOCYTOPENIC PURPURA
     Dosage: 500 MG, BID
     Route: 048
     Dates: start: 20200609, end: 20200616
  147. KETOCONAZOLE. [Concomitant]
     Active Substance: KETOCONAZOLE
     Indication: RASH
     Dosage: 1 APPLICATION, QD
     Route: 061
     Dates: start: 20200615, end: 20200624
  148. ROCURONIUM BROMIDE. [Concomitant]
     Active Substance: ROCURONIUM BROMIDE
     Indication: PULMONARY ALVEOLAR HAEMORRHAGE
     Dosage: 100 MG, 1X
     Route: 042
     Dates: start: 20200626, end: 20200626
  149. DEXMEDETOMIDINE HYDROCHLORIDE. [Concomitant]
     Active Substance: DEXMEDETOMIDINE HYDROCHLORIDE
     Indication: PULMONARY ALVEOLAR HAEMORRHAGE
     Dosage: 4 ML/HOUR, CONT
     Route: 042
     Dates: start: 20200626, end: 20200701
  150. POLAPREZINC [Concomitant]
     Active Substance: POLAPREZINC
     Indication: HYPERSENSITIVITY
     Dosage: 5 MG, 1X
     Route: 042
     Dates: start: 20200606, end: 20200606

REACTIONS (2)
  - Pulmonary alveolar haemorrhage [Recovering/Resolving]
  - Cholecystitis acute [Recovered/Resolved]

NARRATIVE: CASE EVENT DATE: 20200617
